FAERS Safety Report 8193618 (Version 3)
Quarter: 2013Q2

REPORT INFORMATION
  Report Type: Spontaneous
  Country: GB (occurrence: GB)
  Receive Date: 20111021
  Receipt Date: 20130502
  Transmission Date: 20140414
  Serious: Yes (Death)
  Sender: FDA-Public Use
  Company Number: GB-ROCHE-801259

PATIENT
  Age: 52 Year
  Sex: Female
  Weight: 95 kg

DRUGS (33)
  1. MABTHERA [Suspect]
     Indication: CHRONIC LYMPHOCYTIC LEUKAEMIA
     Route: 042
     Dates: start: 20110804, end: 20110804
  2. BENDAMUSTINE HYDROCHLORIDE [Suspect]
     Indication: CHRONIC LYMPHOCYTIC LEUKAEMIA
     Route: 042
     Dates: start: 20110804, end: 20110805
  3. LACTULOSE [Concomitant]
     Indication: CONSTIPATION
     Route: 065
  4. VINCRISTINE [Concomitant]
     Route: 065
     Dates: start: 201001
  5. FLUDARA [Concomitant]
     Indication: CHRONIC LYMPHOCYTIC LEUKAEMIA
     Route: 048
     Dates: start: 2001
  6. CAMPATH [Concomitant]
     Indication: CHRONIC LYMPHOCYTIC LEUKAEMIA
     Route: 042
     Dates: start: 201001
  7. CAMPATH [Concomitant]
     Route: 042
     Dates: start: 201005
  8. CANDESARTAN [Concomitant]
     Indication: BLOOD PRESSURE
     Route: 065
  9. ATORVASTATIN [Concomitant]
     Indication: BLOOD CHOLESTEROL
     Route: 065
  10. CETIRIZINE DIHYDROCHLORIDE [Concomitant]
     Indication: HYPERSENSITIVITY
     Route: 065
  11. PROMETHAZINE TEOCLATE [Concomitant]
     Indication: MOTION SICKNESS
     Route: 065
  12. RISEDRONATE SODIUM [Concomitant]
     Route: 065
  13. CALCICHEW D3 FORTE [Concomitant]
     Route: 065
  14. PREDNISOLONE [Concomitant]
     Route: 065
  15. RANITIDINE [Concomitant]
     Route: 065
  16. OMEPRAZOLE [Concomitant]
     Route: 065
  17. AMITRIPTYLINE [Concomitant]
     Route: 065
  18. AMITRIPTYLINE [Concomitant]
     Route: 065
  19. LEVOTHYROXINE [Concomitant]
     Dosage: 100 MCG
     Route: 065
  20. ACICLOVIR [Concomitant]
     Indication: ANTIVIRAL PROPHYLAXIS
     Route: 065
  21. DAPSONE [Concomitant]
     Route: 065
  22. SENNA [Concomitant]
     Indication: CONSTIPATION
     Route: 065
  23. OILATUM BATH FORMULA [Concomitant]
  24. ONDANSETRON [Concomitant]
     Indication: MALAISE
     Route: 065
  25. FLUCONAZOLE [Concomitant]
     Indication: CANDIDA INFECTION
     Route: 065
  26. METOCLOPRAMIDE [Concomitant]
     Indication: MALAISE
     Dosage: WHEN REQUIRED
     Route: 065
  27. CHLORHEXIDINE [Concomitant]
     Route: 065
  28. FLUDARABINE [Concomitant]
     Route: 065
     Dates: start: 2009
  29. CYCLOPHOSPHAMIDE [Concomitant]
     Route: 065
     Dates: start: 2009
  30. IMMUNOGLOBULIN I.V [Concomitant]
  31. PERINDOPRIL [Concomitant]
     Indication: BLOOD PRESSURE
     Route: 065
  32. DOXORUBICIN [Concomitant]
     Route: 065
     Dates: start: 201007
  33. ALLOPURINOL [Concomitant]
     Route: 065

REACTIONS (1)
  - Progressive multifocal leukoencephalopathy [Fatal]
